FAERS Safety Report 5175398-X (Version None)
Quarter: 2006Q4

REPORT INFORMATION
  Report Type: 
  Country: None (occurrence: None)
  Receive Date: 20061215
  Receipt Date: 20060201
  Transmission Date: 20070319
  Serious: Yes (Life-Threatening, Other)
  Sender: FDA-Public Use
  Company Number: GB-NOVOPROD-250570

PATIENT
  Age: 11 Year
  Sex: Female
  Weight: 46.2 kg

DRUGS (1)
  1. NORDITROPIN SIMPLEXX [Suspect]
     Indication: TURNER'S SYNDROME
     Dosage: 1.6 MG, QD
     Route: 058
     Dates: start: 20051215, end: 20060131

REACTIONS (1)
  - ANAPHYLACTIC SHOCK [None]
